FAERS Safety Report 5147846-2 (Version None)
Quarter: 2006Q4

REPORT INFORMATION
  Report Type: 
  Country: None (occurrence: None)
  Receive Date: 20061110
  Receipt Date: 20061030
  Transmission Date: 20070319
  Serious: Yes (Death, Other)
  Sender: FDA-Public Use
  Company Number: US-BAYER-200615517GDS

PATIENT
  Age: 2 Year
  Sex: Male

DRUGS (1)
  1. NIFEDIPINE [Suspect]
     Dosage: UNIT DOSE: 90 MG
     Route: 048

REACTIONS (11)
  - ACCIDENTAL DRUG INTAKE BY CHILD [None]
  - BLOOD POTASSIUM DECREASED [None]
  - BLOOD PRESSURE DECREASED [None]
  - BRADYCARDIA [None]
  - CARDIAC ARREST [None]
  - HYPERGLYCAEMIA [None]
  - HYPOKALAEMIA [None]
  - HYPOTENSION [None]
  - RESPIRATORY RATE INCREASED [None]
  - TACHYCARDIA [None]
  - VENTRICULAR FIBRILLATION [None]
